FAERS Safety Report 4295035-6 (Version None)
Quarter: 2004Q1

REPORT INFORMATION
  Report Type: 
  Country: None (occurrence: None)
  Receive Date: 20040212
  Receipt Date: 20040212
  Transmission Date: 20041129
  Serious: Yes (Other)
  Sender: FDA-Public Use
  Company Number: None

PATIENT
  Age: 70 Year
  Sex: Male
  Weight: 88.4514 kg

DRUGS (1)
  1. ANCEF [Suspect]
     Indication: INFECTION
     Dosage: 1 GM IV Q 8 HRS
     Route: 042

REACTIONS (3)
  - DYSPNOEA [None]
  - LOCALISED OEDEMA [None]
  - RETCHING [None]
